FAERS Safety Report 22315681 (Version 1)
Quarter: 2023Q2

REPORT INFORMATION
  Report Type: Spontaneous
  Country: US (occurrence: US)
  Receive Date: 20230512
  Receipt Date: 20230512
  Transmission Date: 20230722
  Serious: Yes (Other)
  Sender: FDA-Public Use
  Company Number: US-FreseniusKabi-FK202306476

PATIENT
  Age: 70 Year
  Sex: Male

DRUGS (6)
  1. OCTREOTIDE [Suspect]
     Active Substance: OCTREOTIDE
     Indication: Pancreatic carcinoma metastatic
     Route: 058
  2. hydrochlorothiazide [HCTZ] [Concomitant]
     Indication: Product used for unknown indication
  3. Levothyroxine sodium [levothyroxine] [Concomitant]
     Indication: Product used for unknown indication
  4. pancrelipase [Creon] [Concomitant]
     Indication: Product used for unknown indication
  5. INSULIN NOS [Concomitant]
     Active Substance: INSULIN NOS
     Indication: Product used for unknown indication
  6. ASPIRIN [Concomitant]
     Active Substance: ASPIRIN
     Indication: Product used for unknown indication

REACTIONS (1)
  - Hyperkalaemia [Recovered/Resolved]
